FAERS Safety Report 23921313 (Version 1)
Quarter: 2024Q2

REPORT INFORMATION
  Report Type: Spontaneous
  Country: US (occurrence: None)
  Receive Date: 20240530
  Receipt Date: 20240530
  Transmission Date: 20240716
  Serious: Yes (Hospitalization)
  Sender: FDA-Public Use
  Company Number: None

PATIENT
  Age: 77 Year
  Sex: Male
  Weight: 113 kg

DRUGS (1)
  1. VANCOMYCIN HYDROCHLORIDE [Suspect]
     Active Substance: VANCOMYCIN HYDROCHLORIDE
     Indication: Infection
     Dosage: 1250 MG EVERY DAY IV?
     Route: 042
     Dates: start: 20240203, end: 20240204

REACTIONS (8)
  - Chills [None]
  - Cough [None]
  - Hypotension [None]
  - Respiratory distress [None]
  - Hyperhidrosis [None]
  - Pallor [None]
  - Oxygen saturation decreased [None]
  - Therapy cessation [None]

NARRATIVE: CASE EVENT DATE: 20240203
